FAERS Safety Report 23643165 (Version 1)
Quarter: 2024Q1

REPORT INFORMATION
  Report Type: Spontaneous
  Country: CN (occurrence: CN)
  Receive Date: 20240318
  Receipt Date: 20240318
  Transmission Date: 20240410
  Serious: Yes (Hospitalization, Other)
  Sender: FDA-Public Use
  Company Number: CN-PFIZER INC-PV202400035578

PATIENT
  Age: 26 Year
  Sex: Female
  Weight: 45 kg

DRUGS (1)
  1. METHOTREXATE SODIUM [Suspect]
     Active Substance: METHOTREXATE SODIUM
     Indication: Neoplasm
     Dosage: 20 MG, 1X/DAY
     Route: 041
     Dates: start: 20240217, end: 20240222

REACTIONS (5)
  - Myelosuppression [Recovering/Resolving]
  - Full blood count decreased [Recovering/Resolving]
  - Neutrophil count decreased [Unknown]
  - Platelet count decreased [Unknown]
  - White blood cell count decreased [Unknown]

NARRATIVE: CASE EVENT DATE: 20240229
